FAERS Safety Report 25031339 (Version 1)
Quarter: 2025Q1

REPORT INFORMATION
  Report Type: Spontaneous
  Country: US (occurrence: None)
  Receive Date: 20250228
  Receipt Date: 20250228
  Transmission Date: 20250409
  Serious: Yes (Other)
  Sender: FDA-CTU
  Company Number: None

PATIENT
  Age: 73 Year
  Sex: Female
  Weight: 87.75 kg

DRUGS (19)
  1. VTAMA [Suspect]
     Active Substance: TAPINAROF
     Indication: Rash
     Route: 061
     Dates: start: 20240212, end: 20250213
  2. Metoprolol Succ (Toprol)Er, [Concomitant]
  3. DULOXETINE [Concomitant]
     Active Substance: DULOXETINE
  4. EZETIMIBE [Concomitant]
     Active Substance: EZETIMIBE
  5. AZELASTINE HYDROCHLORIDE [Concomitant]
     Active Substance: AZELASTINE HYDROCHLORIDE
  6. LATANOPROST [Concomitant]
     Active Substance: LATANOPROST
  7. Triamcinoloine Acetonide Cream [Concomitant]
  8. NEXIUM [Concomitant]
     Active Substance: ESOMEPRAZOLE MAGNESIUM
  9. FAMOTIDINE [Concomitant]
     Active Substance: FAMOTIDINE
  10. Centrum Multivitamin [Concomitant]
  11. COD LIVER OIL [Concomitant]
     Active Substance: COD LIVER OIL
  12. VITAMIN B12 [Concomitant]
     Active Substance: CYANOCOBALAMIN
  13. VITAMIN D3 [Concomitant]
     Active Substance: CHOLECALCIFEROL
  14. Vitamin C, [Concomitant]
  15. MAGNESIUM CITRATE [Concomitant]
     Active Substance: MAGNESIUM CITRATE
  16. CANNABIDIOL\HERBALS [Concomitant]
     Active Substance: CANNABIDIOL\HERBALS
  17. HERBALS\TURMERIC [Concomitant]
     Active Substance: HERBALS\TURMERIC
  18. TUMS [Concomitant]
     Active Substance: CALCIUM CARBONATE
  19. ADVIL [Concomitant]
     Active Substance: IBUPROFEN

REACTIONS (6)
  - Headache [None]
  - Pruritus [None]
  - Feeling hot [None]
  - Swelling face [None]
  - Erythema [None]
  - Hypersensitivity [None]

NARRATIVE: CASE EVENT DATE: 20250213
